FAERS Safety Report 19614982 (Version 1)
Quarter: 2021Q3

REPORT INFORMATION
  Report Type: Other
  Country: US (occurrence: US)
  Receive Date: 20210727
  Receipt Date: 20210727
  Transmission Date: 20211014
  Serious: Yes (Death)
  Sender: FDA-Public Use
  Company Number: US-MISSION PHARMACAL COMPANY-2114321

PATIENT
  Age: 82 Year
  Sex: Male

DRUGS (1)
  1. THIOLA EC [Suspect]
     Active Substance: TIOPRONIN
     Indication: CYSTINURIA
     Route: 048
     Dates: start: 20190913, end: 20210705

REACTIONS (3)
  - Urinary tract infection [Fatal]
  - Renal failure [Fatal]
  - Sepsis [Fatal]
